FAERS Safety Report 4805277-6 (Version None)
Quarter: 2005Q4

REPORT INFORMATION
  Report Type: 
  Country: None (occurrence: None)
  Receive Date: 20051020
  Receipt Date: 20050701
  Transmission Date: 20060501
  Serious: Yes (Hospitalization)
  Sender: FDA-Public Use
  Company Number: US-MERCK-0507USA00459

PATIENT
  Age: 42 Year
  Sex: Female
  Weight: 61 kg

DRUGS (2)
  1. VIOXX [Suspect]
     Indication: PAIN
     Route: 048
     Dates: start: 20030101, end: 20040901
  2. ASPIRIN [Concomitant]
     Route: 065
     Dates: start: 20020101

REACTIONS (8)
  - ABDOMINAL PAIN UPPER [None]
  - CARDIAC MURMUR [None]
  - CEREBROVASCULAR ACCIDENT [None]
  - CHRONIC FATIGUE SYNDROME [None]
  - DIABETES MELLITUS [None]
  - HYPERTENSION [None]
  - OVERDOSE [None]
  - TRANSIENT ISCHAEMIC ATTACK [None]
